FAERS Safety Report 5481108-9 (Version None)
Quarter: 2007Q4

REPORT INFORMATION
  Report Type: 
  Country: None (occurrence: None)
  Receive Date: 20071003
  Receipt Date: 20061218
  Transmission Date: 20080405
  Serious: Yes (Other)
  Sender: FDA-Public Use
  Company Number: 6028424

PATIENT
  Age: 27 Month
  Sex: Male

DRUGS (1)
  1. ISOTRETINOIN [Suspect]
     Indication: ACNE CYSTIC
     Dosage: 40,000 MG (20 MG, 2 IN 1 D)

REACTIONS (4)
  - ANAL FISSURE [None]
  - PROCTITIS [None]
  - PRURITUS [None]
  - RECTAL HAEMORRHAGE [None]
